FAERS Safety Report 12373328 (Version 2)
Quarter: 2016Q2

REPORT INFORMATION
  Report Type: Spontaneous
  Country: GB (occurrence: GB)
  Receive Date: 20160516
  Receipt Date: 20160518
  Transmission Date: 20160815
  Serious: Yes (Life-Threatening, Hospitalization, Other)
  Sender: FDA-Public Use
  Company Number: GB-JNJFOC-20160513666

PATIENT
  Age: 42 Year
  Sex: Female

DRUGS (4)
  1. LIXISENATIDE [Concomitant]
     Active Substance: LIXISENATIDE
     Route: 065
  2. METFORMIN [Concomitant]
     Active Substance: METFORMIN HYDROCHLORIDE
     Route: 065
  3. NOVOMIX [Concomitant]
     Active Substance: INSULIN ASPART
     Route: 065
  4. CANAGLIFLOZIN [Suspect]
     Active Substance: CANAGLIFLOZIN
     Indication: TYPE 2 DIABETES MELLITUS
     Route: 048
     Dates: start: 20150312, end: 20151221

REACTIONS (2)
  - Diabetic ketoacidosis [Recovered/Resolved]
  - Vomiting [Unknown]

NARRATIVE: CASE EVENT DATE: 20151108
